FAERS Safety Report 21334967 (Version 1)
Quarter: 2022Q3

REPORT INFORMATION
  Report Type: Spontaneous
  Country: US (occurrence: None)
  Receive Date: 20220914
  Receipt Date: 20220914
  Transmission Date: 20221026
  Serious: Yes (Death)
  Sender: FDA-Public Use
  Company Number: None

PATIENT
  Age: 74 Year
  Sex: Female

DRUGS (1)
  1. INFLECTRA [Suspect]
     Active Substance: INFLIXIMAB-DYYB
     Indication: Rheumatoid arthritis
     Dosage: 5MG/KG OTHER INTRAVENOUS?
     Route: 042
     Dates: start: 202206, end: 202208

REACTIONS (1)
  - Death [None]

NARRATIVE: CASE EVENT DATE: 20220906
